FAERS Safety Report 20757798 (Version 1)
Quarter: 2022Q2

REPORT INFORMATION
  Report Type: Spontaneous
  Country: US (occurrence: None)
  Receive Date: 20220426
  Receipt Date: 20220426
  Transmission Date: 20220721
  Serious: Yes (Other)
  Sender: FDA-Public Use
  Company Number: None

PATIENT
  Age: 7 Year
  Sex: Female
  Weight: 22.5 kg

DRUGS (1)
  1. COPPERTONE PURE AND SIMPLE KIDS SPF 50 [Suspect]
     Active Substance: ZINC OXIDE
     Indication: Prophylaxis against solar radiation
     Dosage: OTHER STRENGTH : NA;?OTHER QUANTITY : 1 BOTTLE;?FREQUENCY : AS NEEDED;?
     Route: 061
     Dates: start: 20220423, end: 20220423

REACTIONS (5)
  - Chemical peel of skin [None]
  - Skin burning sensation [None]
  - Erythema [None]
  - Pain [None]
  - Crying [None]

NARRATIVE: CASE EVENT DATE: 20220423
